FAERS Safety Report 6523790-0 (Version None)
Quarter: 2009Q4

REPORT INFORMATION
  Report Type: 
  Country: None (occurrence: None)
  Receive Date: 20091231
  Receipt Date: 20091208
  Transmission Date: 20100525
  Serious: No
  Sender: FDA-Public Use
  Company Number: US-BAYER-200941761NA

PATIENT
  Sex: Female

DRUGS (3)
  1. MIRENA [Suspect]
     Indication: DRUG USE FOR UNKNOWN INDICATION
     Dosage: CONTINUOUS
     Route: 015
     Dates: start: 20020101, end: 20071123
  2. MIRENA [Suspect]
     Dosage: CONTINUOUS
     Route: 015
     Dates: start: 20071123, end: 20091118
  3. MIRENA [Suspect]
     Dosage: CONTINUOUS
     Route: 015
     Dates: start: 20091118

REACTIONS (1)
  - VAGINAL HAEMORRHAGE [None]
